FAERS Safety Report 6111055-0 (Version None)
Quarter: 2009Q1

REPORT INFORMATION
  Report Type: 
  Country: None (occurrence: None)
  Receive Date: 20090309
  Receipt Date: 20090309
  Transmission Date: 20090719
  Serious: No
  Sender: FDA-Public Use
  Company Number: None

PATIENT
  Age: 9 Year
  Sex: Female
  Weight: 39.7 kg

DRUGS (1)
  1. RAPAMUNE [Suspect]
     Indication: NEUROFIBROMATOSIS
     Dosage: 2.5 ML BID PO
     Route: 048
     Dates: start: 20080917, end: 20090227

REACTIONS (6)
  - CENTRAL NERVOUS SYSTEM LESION [None]
  - CONDITION AGGRAVATED [None]
  - DYSARTHRIA [None]
  - FATIGUE [None]
  - MUSCULAR WEAKNESS [None]
  - SPEECH DISORDER [None]
